FAERS Safety Report 16419346 (Version 2)
Quarter: 2019Q2

REPORT INFORMATION
  Report Type: Spontaneous
  Country: US (occurrence: US)
  Receive Date: 20190612
  Receipt Date: 20190620
  Transmission Date: 20190711
  Serious: No
  Sender: FDA-Public Use
  Company Number: US-ASTRAZENECA-2019SE79204

PATIENT
  Sex: Female

DRUGS (1)
  1. SYMBICORT [Suspect]
     Active Substance: BUDESONIDE\FORMOTEROL FUMARATE DIHYDRATE
     Dosage: 160/4.5,2 PUFF
     Route: 055

REACTIONS (6)
  - Visual impairment [Unknown]
  - Device malfunction [Unknown]
  - Macular degeneration [Unknown]
  - Incorrect dose administered [Unknown]
  - Device use issue [Unknown]
  - Dyspnoea [Unknown]
